FAERS Safety Report 9229630 (Version 2)
Quarter: 2013Q2

REPORT INFORMATION
  Report Type: Spontaneous
  Country: US (occurrence: US)
  Receive Date: 20130415
  Receipt Date: 20130506
  Transmission Date: 20140414
  Serious: No
  Sender: FDA-Public Use
  Company Number: US-009507513-1304USA005112

PATIENT
  Sex: Female
  Weight: 90.7 kg

DRUGS (1)
  1. SAPHRIS [Suspect]
     Dosage: 1 DF RAPID DISSOLVE, QPM
     Route: 060

REACTIONS (1)
  - Inappropriate schedule of drug administration [Unknown]
